FAERS Safety Report 10258593 (Version 1)
Quarter: 2014Q2

REPORT INFORMATION
  Report Type: Spontaneous
  Country: JP (occurrence: JP)
  Receive Date: 20140625
  Receipt Date: 20140625
  Transmission Date: 20141212
  Serious: Yes (Other)
  Sender: FDA-Public Use
  Company Number: JP-MYLANLABS-2014S1014338

PATIENT
  Age: 61 Year
  Sex: Male

DRUGS (3)
  1. CARBOPLATIN [Suspect]
     Indication: LUNG ADENOCARCINOMA
     Route: 041
  2. PACLITAXEL [Suspect]
     Indication: LUNG ADENOCARCINOMA
     Route: 041
  3. BEVACIZUMAB [Suspect]
     Indication: LUNG ADENOCARCINOMA
     Route: 041

REACTIONS (2)
  - Tumour lysis syndrome [Unknown]
  - Ichthyosis acquired [Unknown]
